FAERS Safety Report 9288581 (Version 1)
Quarter: 2012Q4

REPORT INFORMATION
  Report Type: Spontaneous
  Country: CA (occurrence: None)
  Receive Date: 20120920
  Receipt Date: 20120920
  Transmission Date: 20130627
  Serious: Yes (Hospitalization)
  Sender: FDA-Public Use
  Company Number: 215385

PATIENT
  Sex: Female
  Weight: 97 kg

DRUGS (5)
  1. HEPARIN [Suspect]
     Indication: DVT
     Route: 058
  2. INNOHEP [Suspect]
     Indication: DVT
     Route: 058
  3. ENOXAPARIN [Suspect]
     Indication: DEEP VENOUS THROMBOSIS ARM
     Dates: start: 19960912, end: 19960924
  4. WARFARIN [Suspect]
     Indication: DVT
     Route: 048
  5. SUMATRIPTAN (SUMATRIPTAN) [Concomitant]

REACTIONS (3)
  - Treatment noncompliance [None]
  - Drug resistance [None]
  - Deep vein thrombosis [None]
